FAERS Safety Report 7949656-7 (Version None)
Quarter: 2011Q4

REPORT INFORMATION
  Report Type: 
  Country: None (occurrence: None)
  Receive Date: 20111130
  Receipt Date: 20111122
  Transmission Date: 20120403
  Serious: Yes (Death, Hospitalization, Other)
  Sender: FDA-Public Use
  Company Number: US-ACTELION-A-NJ2011-53766

PATIENT

DRUGS (11)
  1. POTASSIUM ACETATE [Concomitant]
  2. FLOLAN [Concomitant]
     Dosage: UNK
     Dates: start: 20090630, end: 20110907
  3. BUMEX [Concomitant]
     Dosage: 2 MG, BID
  4. EPOPROSTENOL SODIUM [Suspect]
     Indication: PULMONARY ARTERIAL HYPERTENSION
     Dosage: 4.7 NG/KG, PER MIN
     Route: 041
     Dates: start: 20110907, end: 20110907
  5. ALDACTONE [Concomitant]
     Dosage: 50 MG, BID
  6. ALBUTEROL [Concomitant]
  7. DIGOXIN [Concomitant]
  8. PREDNISONE TAB [Concomitant]
     Dosage: 10 MG, QD
  9. OXYGEN [Concomitant]
     Dosage: 6 L/MIN, UNK
  10. ADVAIR DISKUS 100/50 [Concomitant]
  11. EPOPROSTENOL SODIUM [Suspect]
     Dosage: 5.4 NG/KG, PER MIN
     Route: 041
     Dates: start: 20110907, end: 20110907

REACTIONS (6)
  - ENDOTRACHEAL INTUBATION [None]
  - CARDIO-RESPIRATORY ARREST [None]
  - VENTRICULAR TACHYCARDIA [None]
  - OXYGEN SATURATION DECREASED [None]
  - DEATH [None]
  - DYSPNOEA [None]
